FAERS Safety Report 12213936 (Version 2)
Quarter: 2016Q1

REPORT INFORMATION
  Report Type: Spontaneous
  Country: US (occurrence: US)
  Receive Date: 20160328
  Receipt Date: 20160330
  Transmission Date: 20160526
  Serious: No
  Sender: FDA-Public Use
  Company Number: US-MISSION PHARMACAL COMPANY-1049762

PATIENT
  Age: 72 Year
  Sex: Male

DRUGS (1)
  1. THIOLA [Suspect]
     Active Substance: TIOPRONIN
     Indication: NEPHROLITHIASIS
     Route: 065
     Dates: start: 20140824

REACTIONS (8)
  - Splenomegaly [Unknown]
  - Thrombocytopenia [Unknown]
  - Back pain [Unknown]
  - Gastric disorder [Unknown]
  - Nephrolithiasis [Not Recovered/Not Resolved]
  - Ketonuria [Unknown]
  - Non-cardiac chest pain [Unknown]
  - Decreased appetite [Unknown]
